FAERS Safety Report 5175664-8 (Version None)
Quarter: 2006Q4

REPORT INFORMATION
  Report Type: 
  Country: None (occurrence: None)
  Receive Date: 20061215
  Receipt Date: 20060712
  Transmission Date: 20070319
  Serious: No
  Sender: FDA-Public Use
  Company Number: US-AMGEN-KDL186131

PATIENT
  Sex: Female

DRUGS (2)
  1. ENBREL [Suspect]
     Indication: PSORIASIS
     Route: 058
     Dates: start: 20060301
  2. CIPRO [Concomitant]

REACTIONS (4)
  - BALANCE DISORDER [None]
  - HYPERTENSION [None]
  - INJECTION SITE REACTION [None]
  - SINUSITIS [None]
